FAERS Safety Report 9690493 (Version 1)
Quarter: 2013Q4

REPORT INFORMATION
  Report Type: Spontaneous
  Country: US (occurrence: US)
  Receive Date: 20131115
  Receipt Date: 20131115
  Transmission Date: 20140711
  Serious: Yes (Other)
  Sender: FDA-Public Use
  Company Number: US-BAYER-2013-139361

PATIENT
  Age: 38 Year
  Sex: Female

DRUGS (7)
  1. YASMIN [Suspect]
  2. YAZ [Suspect]
  3. CHROMAGEN FA [Concomitant]
  4. MOTRIN [Concomitant]
     Dosage: 800 MG, UNK
  5. TRIMETHOPRIM [Concomitant]
     Dosage: 800/160
     Route: 048
     Dates: start: 20051001
  6. CLOTRIMAZOLE [Concomitant]
     Dosage: 15 G, UNK
     Route: 061
     Dates: start: 20051001
  7. CHROMAGEN FORTE [Concomitant]
     Dosage: UNK
     Route: 048
     Dates: start: 20051001

REACTIONS (2)
  - Deep vein thrombosis [None]
  - Thrombophlebitis superficial [None]
